FAERS Safety Report 8841821 (Version 1)
Quarter: 2012Q4

REPORT INFORMATION
  Report Type: 
  Country: NL (occurrence: NL)
  Receive Date: 20121016
  Receipt Date: 20121016
  Transmission Date: 20130627
  Serious: Yes (Death, Hospitalization, Other)
  Sender: FDA-Public Use
  Company Number: NL-JNJFOC-NSADSS2001017672

PATIENT
  Age: 73 Year
  Sex: Female
  Weight: 70 kg

DRUGS (16)
  1. REMICADE [Suspect]
     Indication: RHEUMATOID ARTHRITIS
     Dosage: dosage - 220 mg, 3 mg/kg powder for infusion 100 mg
     Route: 042
     Dates: start: 20010105, end: 20010105
  2. FOLIC ACID [Concomitant]
     Route: 048
     Dates: end: 20010705
  3. AMARYL [Concomitant]
     Route: 048
  4. BISACODYL [Concomitant]
     Route: 048
  5. BURINEX [Concomitant]
     Route: 048
  6. CAPTOPRIL [Concomitant]
     Route: 048
  7. DORMICUM [Concomitant]
     Route: 048
  8. FERROSI FUMARAS [Concomitant]
     Route: 048
  9. ISORDIL [Concomitant]
     Route: 048
  10. LANOXIN [Concomitant]
     Route: 048
  11. METHOTREXATE [Concomitant]
     Route: 048
     Dates: end: 20010705
  12. PARACETAMOL [Concomitant]
     Route: 048
  13. PARIET [Concomitant]
     Route: 048
  14. PREDNISOLON [Concomitant]
     Route: 048
  15. TRIAMTERENE [Concomitant]
     Route: 048
  16. CIPROFLOXACIN [Concomitant]
     Route: 065

REACTIONS (12)
  - Tuberculosis [Fatal]
  - Rectal haemorrhage [Unknown]
  - Cholestasis [Unknown]
  - Pyrexia [Not Recovered/Not Resolved]
  - Chills [Unknown]
  - Myalgia [Unknown]
  - Dyspnoea [Unknown]
  - C-reactive protein increased [Unknown]
  - Laboratory test abnormal [Unknown]
  - Escherichia urinary tract infection [Unknown]
  - Diverticulum [Unknown]
  - Abdominal pain upper [Unknown]
